FAERS Safety Report 11675226 (Version 1)
Quarter: 2015Q4

REPORT INFORMATION
  Report Type: Spontaneous
  Country: US (occurrence: US)
  Receive Date: 20151027
  Receipt Date: 20151027
  Transmission Date: 20160304
  Serious: No
  Sender: FDA-Public Use
  Company Number: US-ELI_LILLY_AND_COMPANY-US201008007862

PATIENT
  Age: 84 Year
  Sex: Female

DRUGS (2)
  1. FORTEO [Suspect]
     Active Substance: TERIPARATIDE
     Dates: start: 20100527, end: 20100610
  2. FORTEO [Suspect]
     Active Substance: TERIPARATIDE
     Dates: start: 20100709

REACTIONS (2)
  - Pain in extremity [Unknown]
  - Peripheral swelling [Unknown]
